FAERS Safety Report 24977021 (Version 1)
Quarter: 2025Q1

REPORT INFORMATION
  Report Type: Report from Study
  Country: CA (occurrence: CA)
  Receive Date: 20250217
  Receipt Date: 20250217
  Transmission Date: 20250408
  Serious: Yes (Other)
  Sender: TAKEDA
  Company Number: CA-TAKEDA-2025TUS015686

PATIENT
  Age: 84 Year
  Sex: Male

DRUGS (14)
  1. VEDOLIZUMAB [Suspect]
     Active Substance: VEDOLIZUMAB
     Indication: Crohn^s disease
  2. PANTOPRAZOLE SODIUM [Suspect]
     Active Substance: PANTOPRAZOLE SODIUM
     Indication: Product used for unknown indication
  3. FERROUS SULFATE [Concomitant]
     Active Substance: FERROUS SULFATE
  4. ASPIRIN [Concomitant]
     Active Substance: ASPIRIN
  5. TYLENOL EXTRA STRENGTH [Concomitant]
     Active Substance: ACETAMINOPHEN
  6. DILTIAZEM [Concomitant]
     Active Substance: DILTIAZEM
  7. TAMSULOSIN [Concomitant]
     Active Substance: TAMSULOSIN
  8. DUTASTERIDE [Concomitant]
     Active Substance: DUTASTERIDE
  9. ROSUVASTATIN [Concomitant]
     Active Substance: ROSUVASTATIN
  10. IRBESARTAN [Concomitant]
     Active Substance: IRBESARTAN
  11. XARELTO [Concomitant]
     Active Substance: RIVAROXABAN
  12. VITAMIN B12 [Concomitant]
     Active Substance: CYANOCOBALAMIN
  13. GLUCOSAMINE [Concomitant]
     Active Substance: GLUCOSAMINE
  14. TYLENOL ARTHRITIS PAIN [Concomitant]
     Active Substance: ACETAMINOPHEN

REACTIONS (1)
  - Urinary retention [Recovered/Resolved]

NARRATIVE: CASE EVENT DATE: 20250201
